FAERS Safety Report 10898844 (Version 1)
Quarter: 2015Q1

REPORT INFORMATION
  Report Type: Spontaneous
  Country: US (occurrence: US)
  Receive Date: 20150309
  Receipt Date: 20150309
  Transmission Date: 20150721
  Serious: Yes (Hospitalization)
  Sender: FDA-Public Use
  Company Number: US-B.I. PHARMACEUTICALS,INC./RIDGEFIELD-2015-BI-10340BP

PATIENT
  Age: 59 Year
  Sex: Female
  Weight: 71 kg

DRUGS (1)
  1. DULCOLAX [Suspect]
     Active Substance: BISACODYL OR DOCUSATE SODIUM
     Indication: CONSTIPATION
     Dosage: 10 MG
     Route: 048
     Dates: start: 2014

REACTIONS (2)
  - Neuropathy peripheral [Not Recovered/Not Resolved]
  - Impaired gastric emptying [Not Recovered/Not Resolved]

NARRATIVE: CASE EVENT DATE: 201412
